FAERS Safety Report 20923673 (Version 2)
Quarter: 2022Q2

REPORT INFORMATION
  Report Type: Other
  Country: NL (occurrence: NL)
  Receive Date: 20220607
  Receipt Date: 20220609
  Transmission Date: 20220720
  Serious: No
  Sender: FDA-Public Use
  Company Number: None

PATIENT
  Age: 10 Year
  Sex: Male
  Weight: 26 kg

DRUGS (1)
  1. VESICARE [Suspect]
     Active Substance: SOLIFENACIN SUCCINATE
     Indication: Incontinence
     Route: 065
     Dates: start: 2020, end: 20220523

REACTIONS (1)
  - Delusion [Unknown]

NARRATIVE: CASE EVENT DATE: 20220511
